FAERS Safety Report 13726410 (Version 1)
Quarter: 2017Q3

REPORT INFORMATION
  Report Type: Spontaneous
  Country: FR (occurrence: FR)
  Receive Date: 20170707
  Receipt Date: 20170707
  Transmission Date: 20171127
  Serious: Yes (Hospitalization)
  Sender: FDA-Public Use
  Company Number: FR-JNJFOC-20170702519

PATIENT
  Age: 0 Year
  Sex: Female
  Weight: 1.13 kg

DRUGS (3)
  1. KIVEXA [Suspect]
     Active Substance: ABACAVIR SULFATE\LAMIVUDINE
     Indication: EXPOSURE TO COMMUNICABLE DISEASE
     Route: 064
     Dates: start: 20150303, end: 20170612
  2. NORVIR [Suspect]
     Active Substance: RITONAVIR
     Indication: EXPOSURE TO COMMUNICABLE DISEASE
     Route: 064
     Dates: start: 20150303, end: 20170612
  3. PREZISTA [Suspect]
     Active Substance: DARUNAVIR ETHANOLATE
     Indication: EXPOSURE TO COMMUNICABLE DISEASE
     Route: 064
     Dates: start: 20150303, end: 20170612

REACTIONS (4)
  - Foetal exposure during pregnancy [Recovered/Resolved]
  - Foetal growth restriction [Unknown]
  - Premature baby [Unknown]
  - Foetal heart rate disorder [Unknown]

NARRATIVE: CASE EVENT DATE: 20161130
